FAERS Safety Report 19002363 (Version 3)
Quarter: 2021Q2

REPORT INFORMATION
  Report Type: Spontaneous
  Country: FR (occurrence: FR)
  Receive Date: 20210312
  Receipt Date: 20210531
  Transmission Date: 20210717
  Serious: Yes (Other)
  Sender: FDA-Public Use
  Company Number: FR-ORGANON-1804FRA010223

PATIENT
  Age: 18 Year
  Sex: Female

DRUGS (1)
  1. NEXPLANON [Suspect]
     Active Substance: ETONOGESTREL
     Dosage: ONE IMPLANT
     Route: 059
     Dates: start: 201511

REACTIONS (6)
  - Complication associated with device [Recovered/Resolved]
  - Scar [Unknown]
  - Device embolisation [Not Recovered/Not Resolved]
  - General anaesthesia [Not Recovered/Not Resolved]
  - Surgery [Not Recovered/Not Resolved]
  - Incorrect product administration duration [Unknown]

NARRATIVE: CASE EVENT DATE: 201811
